FAERS Safety Report 8575192-3 (Version None)
Quarter: 2012Q3

REPORT INFORMATION
  Report Type: 
  Country: None (occurrence: None)
  Receive Date: 20120807
  Receipt Date: 20110826
  Transmission Date: 20120928
  Serious: Yes (Hospitalization)
  Sender: FDA-Public Use
  Company Number: DE-CELGENEUS-062-50794-12052676

PATIENT
  Age: 54 Year
  Sex: Female
  Weight: 102 kg

DRUGS (3)
  1. RED BLOOD CELLS, CONCENTRATED [Concomitant]
     Route: 041
     Dates: start: 20110817, end: 20110817
  2. VIDAZA [Suspect]
     Dosage: 75 MILLIGRAM/SQ. METER
     Route: 065
     Dates: start: 20110523, end: 20110527
  3. VIDAZA [Suspect]
     Dosage: 75 MILLIGRAM/SQ. METER
     Route: 065
     Dates: start: 20110427

REACTIONS (7)
  - THROMBOCYTOPENIA [None]
  - NAUSEA [None]
  - LEUKOPENIA [None]
  - ABDOMINAL HERNIA [None]
  - SEPSIS [None]
  - GRANULOCYTOPENIA [None]
  - GENERAL PHYSICAL HEALTH DETERIORATION [None]
